FAERS Safety Report 9624415 (Version 1)
Quarter: 2013Q4

REPORT INFORMATION
  Report Type: Report from Study
  Country: LB (occurrence: LB)
  Receive Date: 20131015
  Receipt Date: 20131015
  Transmission Date: 20140711
  Serious: Yes (Hospitalization)
  Sender: FDA-Public Use
  Company Number: LB-GLAXOSMITHKLINE-B0930076A

PATIENT
  Sex: Female
  Weight: 64 kg

DRUGS (2)
  1. NELARABINE [Suspect]
     Indication: LEUKAEMIA
     Dosage: 1500MG PER DAY
     Route: 065
     Dates: start: 20130907
  2. UNKNOWN DRUG [Suspect]
     Indication: NAUSEA
     Dosage: 10MG THREE TIMES PER DAY
     Route: 042
     Dates: start: 2011, end: 20131007

REACTIONS (1)
  - Aphasia [Recovering/Resolving]
